FAERS Safety Report 11674875 (Version 2)
Quarter: 2016Q1

REPORT INFORMATION
  Report Type: Spontaneous
  Country: US (occurrence: US)
  Receive Date: 20151028
  Receipt Date: 20160105
  Transmission Date: 20160525
  Serious: No
  Sender: FDA-Public Use
  Company Number: US-TEVA-603392USA

PATIENT
  Age: 45 Year
  Sex: Female
  Weight: 54.48 kg

DRUGS (1)
  1. COPAXONE [Suspect]
     Active Substance: GLATIRAMER ACETATE
     Indication: MULTIPLE SCLEROSIS
     Route: 058
     Dates: start: 20140619, end: 20150914

REACTIONS (8)
  - Muscular weakness [Unknown]
  - Feeling abnormal [Unknown]
  - Nausea [Unknown]
  - Diarrhoea [Unknown]
  - Pain in extremity [Unknown]
  - Flushing [Unknown]
  - Palpitations [Unknown]
  - Feeling cold [Unknown]

NARRATIVE: CASE EVENT DATE: 20150902
